FAERS Safety Report 19182786 (Version 1)
Quarter: 2021Q2

REPORT INFORMATION
  Report Type: Other
  Country: BE (occurrence: BE)
  Receive Date: 20210426
  Receipt Date: 20210426
  Transmission Date: 20210717
  Serious: Yes (Other)
  Sender: FDA-Public Use
  Company Number: BE-ROCHE-2812019

PATIENT
  Age: 80 Year
  Sex: Male

DRUGS (1)
  1. ATEZOLIZUMAB. [Suspect]
     Active Substance: ATEZOLIZUMAB
     Indication: HEPATOCELLULAR CARCINOMA
     Dosage: 1200MG/20ML
     Route: 041

REACTIONS (2)
  - Thyroiditis [Unknown]
  - Disease progression [Unknown]

NARRATIVE: CASE EVENT DATE: 20201022
